FAERS Safety Report 8880317 (Version 1)
Quarter: 2012Q4

REPORT INFORMATION
  Report Type: 
  Country: FR (occurrence: FR)
  Receive Date: 20121101
  Receipt Date: 20121101
  Transmission Date: 20130627
  Serious: Yes (Hospitalization, Other)
  Sender: FDA-Public Use
  Company Number: FR-PFIZER INC-2012270695

PATIENT
  Age: 91 Year
  Sex: Male

DRUGS (9)
  1. CORDARONE [Suspect]
     Indication: ATRIAL FIBRILLATION
     Dosage: 200 mg, daily
     Route: 048
     Dates: start: 20120815
  2. PRADAXA [Interacting]
     Indication: DRUG USE FOR UNKNOWN INDICATION
     Dosage: 110 mg, 2x/day
     Route: 048
     Dates: start: 20120815, end: 20120913
  3. COVERAM [Concomitant]
     Dosage: UNK
  4. TAHOR [Concomitant]
     Dosage: UNK
  5. JOSIR [Concomitant]
     Dosage: UNK
  6. INEXIUM [Concomitant]
     Dosage: UNK
  7. DAFALGAN [Concomitant]
     Dosage: UNK
  8. KARDEGIC [Concomitant]
     Dosage: UNK
     Dates: start: 20120815
  9. PLAVIX [Concomitant]
     Dosage: UNK
     Dates: start: 20120815

REACTIONS (13)
  - Drug interaction [Recovered/Resolved]
  - International normalised ratio increased [Recovered/Resolved]
  - Prothrombin time ratio decreased [Recovered/Resolved]
  - Activated partial thromboplastin time prolonged [Recovered/Resolved]
  - Coagulation factor V level decreased [Recovered/Resolved]
  - Ecchymosis [Recovered/Resolved]
  - Abdominal pain [Recovered/Resolved]
  - Diarrhoea [Recovered/Resolved]
  - Malaise [Recovered/Resolved]
  - Hypotension [Recovered/Resolved]
  - Dehydration [Recovered/Resolved]
  - Renal failure [Unknown]
  - Colitis ischaemic [Unknown]
